FAERS Safety Report 10430926 (Version 1)
Quarter: 2014Q1

REPORT INFORMATION
  Report Type: Spontaneous
  Country: US (occurrence: None)
  Receive Date: 20140314
  Receipt Date: 20140314
  Transmission Date: 20141002
  Serious: Yes (Other)
  Sender: FDA-Public Use
  Company Number: 2013000029A

PATIENT
  Age: 59 Year
  Sex: Female

DRUGS (2)
  1. TRAZODONE [Suspect]
     Indication: ANTIDEPRESSANT THERAPY
  2. DULOXETINE (DULOXETINE) (DULOXETINE) [Suspect]
     Indication: ANTIDEPRESSANT THERAPY

REACTIONS (2)
  - Serotonin syndrome [None]
  - Drug interaction [None]
